FAERS Safety Report 20583568 (Version 1)
Quarter: 2022Q1

REPORT INFORMATION
  Report Type: Report from Study
  Country: US (occurrence: US)
  Receive Date: 20220311
  Receipt Date: 20220311
  Transmission Date: 20220423
  Serious: Yes (Other)
  Sender: FDA-Public Use
  Company Number: US-UPSHER-SMITH LABORATORIES, LLC-2022USL00150

PATIENT
  Sex: Male

DRUGS (2)
  1. VIGADRONE [Suspect]
     Active Substance: VIGABATRIN
     Dosage: UNK
     Dates: start: 20211130
  2. VIGADRONE [Suspect]
     Active Substance: VIGABATRIN
     Dosage: UNK, WEANED OFF

REACTIONS (3)
  - Loss of consciousness [Recovered/Resolved]
  - Dystonia [Recovered/Resolved]
  - Electroencephalogram abnormal [Not Recovered/Not Resolved]
